FAERS Safety Report 9288985 (Version 2)
Quarter: 2015Q1

REPORT INFORMATION
  Report Type: Report from Study
  Country: DK (occurrence: DK)
  Receive Date: 20130514
  Receipt Date: 20150311
  Transmission Date: 20150721
  Serious: Yes (Other)
  Sender: FDA-Public Use
  Company Number: DK-GLAXOSMITHKLINE-Z0017279A

PATIENT
  Age: 73 Year
  Sex: Female
  Weight: 61 kg

DRUGS (3)
  1. PAZOPANIB [Suspect]
     Active Substance: PAZOPANIB
     Dosage: 400 UNK, UNK
     Route: 048
     Dates: start: 20120328, end: 20120509
  2. PAZOPANIB [Suspect]
     Active Substance: PAZOPANIB
     Indication: RENAL CELL CARCINOMA
     Dosage: 600 MG, 1D
     Route: 048
     Dates: start: 20120315, end: 20120322
  3. PAZOPANIB [Suspect]
     Active Substance: PAZOPANIB
     Dosage: 200 UNK, UNK
     Route: 048
     Dates: start: 20120614, end: 20120910

REACTIONS (1)
  - Alanine aminotransferase increased [Recovered/Resolved]

NARRATIVE: CASE EVENT DATE: 20120418
